FAERS Safety Report 12109354 (Version 1)
Quarter: 2016Q1

REPORT INFORMATION
  Report Type: Spontaneous
  Country: US (occurrence: US)
  Receive Date: 20160224
  Receipt Date: 20160224
  Transmission Date: 20160526
  Serious: Yes (Hospitalization, Other)
  Sender: FDA-Public Use
  Company Number: PHEH2016US003945

PATIENT
  Age: 1 Year
  Sex: Male

DRUGS (1)
  1. ZOFRAN [Suspect]
     Active Substance: ONDANSETRON HYDROCHLORIDE
     Indication: GASTROENTERITIS VIRAL
     Dosage: 2 MG, UNK
     Route: 048

REACTIONS (3)
  - Off label use [Unknown]
  - Seizure [Unknown]
  - Apnoea [Unknown]

NARRATIVE: CASE EVENT DATE: 20160213
